FAERS Safety Report 5100629-1 (Version None)
Quarter: 2006Q3

REPORT INFORMATION
  Report Type: 
  Country: None (occurrence: None)
  Receive Date: 20060906
  Receipt Date: 20060824
  Transmission Date: 20061208
  Serious: Yes (Other)
  Sender: FDA-Public Use
  Company Number: B0436495A

PATIENT
  Age: 22 Year
  Sex: Female

DRUGS (3)
  1. LITHIUM CARBONATE [Suspect]
     Indication: BIPOLAR DISORDER
     Dates: start: 20030101
  2. OLANZAPINE [Concomitant]
  3. OXCARBAZEPINE [Concomitant]

REACTIONS (6)
  - CEREBELLAR ATAXIA [None]
  - CEREBELLAR SYNDROME [None]
  - COORDINATION ABNORMAL [None]
  - DYSARTHRIA [None]
  - GASTROENTERITIS [None]
  - NEUROTOXICITY [None]
